FAERS Safety Report 21472171 (Version 1)
Quarter: 2022Q4

REPORT INFORMATION
  Report Type: Spontaneous
  Country: US (occurrence: US)
  Receive Date: 20221018
  Receipt Date: 20221018
  Transmission Date: 20230113
  Serious: Yes (Hospitalization, Other)
  Sender: FDA-Public Use
  Company Number: US-INDIVIOR EUROPE LIMITED-INDV-136294-2022

PATIENT
  Age: 69 Year
  Sex: Male

DRUGS (1)
  1. SUBOXONE [Suspect]
     Active Substance: BUPRENORPHINE HYDROCHLORIDE\NALOXONE HYDROCHLORIDE
     Indication: Drug use disorder
     Dosage: UNK
     Route: 065

REACTIONS (6)
  - Lumbar spinal stenosis [Unknown]
  - Peroneal nerve palsy [Unknown]
  - Acute kidney injury [Unknown]
  - Haemorrhage [Unknown]
  - Osteoarthritis [Unknown]
  - Procedural pain [Unknown]
